FAERS Safety Report 13931636 (Version 1)
Quarter: 2017Q3

REPORT INFORMATION
  Report Type: Report from Study
  Country: None (occurrence: AU)
  Receive Date: 20170904
  Receipt Date: 20170904
  Transmission Date: 20171127
  Serious: Yes (Hospitalization, Other)
  Sender: FDA-Public Use
  Company Number: AU-ABBVIE-17K-008-2085512-00

PATIENT
  Age: 45 Year
  Sex: Female

DRUGS (1)
  1. HUMIRA [Suspect]
     Active Substance: ADALIMUMAB
     Indication: CROHN^S DISEASE
     Route: 058

REACTIONS (11)
  - Paraesthesia oral [Unknown]
  - Malaise [Recovered/Resolved]
  - Vision blurred [Unknown]
  - Lacrimation increased [Unknown]
  - Hypoaesthesia oral [Unknown]
  - Eye disorder [Unknown]
  - Malnutrition [Recovered/Resolved]
  - Visual impairment [Unknown]
  - Crohn^s disease [Recovered/Resolved]
  - Eye pruritus [Unknown]
  - Swelling face [Unknown]

NARRATIVE: CASE EVENT DATE: 201701
